FAERS Safety Report 5336867-2 (Version None)
Quarter: 2007Q2

REPORT INFORMATION
  Report Type: 
  Country: None (occurrence: None)
  Receive Date: 20070524
  Receipt Date: 20070524
  Transmission Date: 20071010
  Serious: Yes (Hospitalization)
  Sender: FDA-Public Use
  Company Number: None

PATIENT
  Sex: Male
  Weight: 86 kg

DRUGS (4)
  1. TEMOZOLOMIDE [Suspect]
     Dosage: 1600 MG
  2. EFFEXOR XR [Concomitant]
  3. LIBRIUM [Concomitant]
  4. PROZAC [Concomitant]

REACTIONS (5)
  - DIARRHOEA [None]
  - FALL [None]
  - GAIT DISTURBANCE [None]
  - INCOHERENT [None]
  - MENTAL STATUS CHANGES [None]
